FAERS Safety Report 16672543 (Version 1)
Quarter: 2019Q3

REPORT INFORMATION
  Report Type: Spontaneous
  Country: US (occurrence: US)
  Receive Date: 20190806
  Receipt Date: 20190806
  Transmission Date: 20191004
  Serious: Yes (Hospitalization)
  Sender: FDA-Public Use
  Company Number: US-ALVOGEN-2019-ALVOGEN-100870

PATIENT
  Age: 70 Year
  Sex: Female
  Weight: 59.4 kg

DRUGS (12)
  1. ASCORBIC ACID/CALCIUM CARBONATE/CALCIUM PANTOTHENATE/CALCIUM PHOSPHATE/CHROMIUM/CYANOCOBALAMIN/FOLIC [Concomitant]
     Indication: SUPPLEMENTATION THERAPY
  2. CALCIUM [Concomitant]
     Active Substance: CALCIUM
     Indication: SUPPLEMENTATION THERAPY
  3. BIFIDOBACTERIUM BIFIDUM/BIFIDOBACTERIUM LACTIS/BIFIDOBACTERIUM LONGUM/LACTOBACILLUS ACIDOPHILUS/LACT [Concomitant]
     Indication: SUPPLEMENTATION THERAPY
  4. LEVOTHYROXINE SODIUM. [Concomitant]
     Active Substance: LEVOTHYROXINE SODIUM
     Indication: PRODUCT USED FOR UNKNOWN INDICATION
  5. NITROFURANTOIN. [Suspect]
     Active Substance: NITROFURANTOIN
     Indication: URINARY TRACT INFECTION
     Dates: start: 20190709, end: 20190710
  6. AMIFAMPRIDINE PHOSPHATE [Suspect]
     Active Substance: AMIFAMPRIDINE PHOSPHATE
     Indication: MYASTHENIC SYNDROME
     Dosage: 10 MG TABLET
     Route: 048
     Dates: start: 20190320, end: 20190323
  7. VITAMIN B12 [Concomitant]
     Active Substance: CYANOCOBALAMIN
     Indication: SUPPLEMENTATION THERAPY
  8. VITAMIN D [Concomitant]
     Active Substance: VITAMIN D NOS
     Indication: SUPPLEMENTATION THERAPY
     Dosage: 5000-10000 UNITS PER DAY
  9. AMIFAMPRIDINE PHOSPHATE [Suspect]
     Active Substance: AMIFAMPRIDINE PHOSPHATE
     Indication: MYASTHENIC SYNDROME
     Dosage: 20 MG
     Route: 048
     Dates: start: 20190712
  10. AMIFAMPRIDINE PHOSPHATE [Suspect]
     Active Substance: AMIFAMPRIDINE PHOSPHATE
     Indication: MYASTHENIC SYNDROME
     Dosage: INCREASE 5 MG PER DAY EVERY 4 DAYS
     Route: 048
     Dates: start: 20190324, end: 20190425
  11. FISH OIL/TOCOPHEROL [Concomitant]
     Indication: SUPPLEMENTATION THERAPY
  12. AMIFAMPRIDINE PHOSPHATE [Suspect]
     Active Substance: AMIFAMPRIDINE PHOSPHATE
     Indication: MYASTHENIC SYNDROME
     Dosage: 60 MG
     Route: 048
     Dates: start: 20190426, end: 20190710

REACTIONS (2)
  - Swelling [Recovering/Resolving]
  - Swelling face [Recovering/Resolving]

NARRATIVE: CASE EVENT DATE: 20190710
